FAERS Safety Report 16995057 (Version 2)
Quarter: 2019Q4

REPORT INFORMATION
  Report Type: Spontaneous
  Country: US (occurrence: US)
  Receive Date: 20191105
  Receipt Date: 20191220
  Transmission Date: 20200122
  Serious: No
  Sender: FDA-Public Use
  Company Number: US-PFIZER INC-2019472498

PATIENT
  Age: 59 Year

DRUGS (1)
  1. FLECTOR [Suspect]
     Active Substance: DICLOFENAC EPOLAMINE
     Dosage: UNK

REACTIONS (1)
  - Wrong technique in product usage process [Unknown]
